FAERS Safety Report 20187533 (Version 1)
Quarter: 2021Q4

REPORT INFORMATION
  Report Type: Spontaneous
  Country: CZ (occurrence: CZ)
  Receive Date: 20211215
  Receipt Date: 20211215
  Transmission Date: 20220303
  Serious: Yes (Hospitalization, Other)
  Sender: FDA-Public Use
  Company Number: CZ-GLAXOSMITHKLINE-CZ2021EME253565

PATIENT
  Age: 20 Year
  Sex: Female
  Weight: 50 kg

DRUGS (4)
  1. LAMICTAL [Interacting]
     Active Substance: LAMOTRIGINE
     Indication: Seizure
     Dosage: 50 MG, BID
  2. LAMICTAL [Interacting]
     Active Substance: LAMOTRIGINE
     Dosage: 75 MG, BID
  3. LAMICTAL [Interacting]
     Active Substance: LAMOTRIGINE
     Dosage: 100 MG, BID
  4. ETHINYL ESTRADIOL\GESTODENE [Interacting]
     Active Substance: ETHINYL ESTRADIOL\GESTODENE
     Indication: Contraception
     Dosage: UNK UNK, 1D (USED FOR ABOUT HALF A YEAR)

REACTIONS (12)
  - Treatment failure [Unknown]
  - Drug interaction [Recovered/Resolved]
  - Fatigue [Recovered/Resolved]
  - Epilepsy [Recovered/Resolved]
  - Muscle spasms [Recovered/Resolved]
  - Screaming [Recovered/Resolved]
  - Cyanosis [Recovered/Resolved]
  - Headache [Recovered/Resolved]
  - Nausea [Recovered/Resolved]
  - Pain in extremity [Recovered/Resolved]
  - Anticonvulsant drug level below therapeutic [Recovered/Resolved]
  - Drug clearance increased [Recovered/Resolved]
